FAERS Safety Report 5798638-2 (Version None)
Quarter: 2008Q3

REPORT INFORMATION
  Report Type: 
  Country: None (occurrence: None)
  Receive Date: 20080702
  Receipt Date: 20080701
  Transmission Date: 20090109
  Serious: Yes (Other)
  Sender: FDA-Public Use
  Company Number: GB-WYE-G01794608

PATIENT
  Age: 35 Year
  Sex: Female

DRUGS (8)
  1. IBUPROFEN [Suspect]
     Dates: start: 20080622, end: 20080623
  2. ONDANSETRON [Suspect]
     Dates: start: 20080621, end: 20080623
  3. TRAMADOL HCL [Suspect]
     Dosage: UNKNOWN
  4. FENTANYL [Concomitant]
     Dosage: UNKNOWN
  5. HEPARIN [Concomitant]
     Dosage: UNKNOWN
  6. ACETAMINOPHEN [Concomitant]
     Dosage: UNKNOWN
  7. CYCLIZINE [Suspect]
     Dates: start: 20080621, end: 20080622
  8. CIPROFLOXACIN [Concomitant]
     Dosage: UNKNOWN

REACTIONS (7)
  - HYPOTENSION [None]
  - LOSS OF CONSCIOUSNESS [None]
  - MALAISE [None]
  - MUSCULAR WEAKNESS [None]
  - RASH GENERALISED [None]
  - SENSATION OF HEAVINESS [None]
  - TACHYCARDIA [None]
